FAERS Safety Report 5036347-8 (Version None)
Quarter: 2006Q2

REPORT INFORMATION
  Report Type: 
  Country: None (occurrence: None)
  Receive Date: 20060601
  Receipt Date: 20050630
  Transmission Date: 20061013
  Serious: Yes (Death)
  Sender: FDA-Public Use
  Company Number: 395651

PATIENT
  Age: 36 Year
  Sex: Male
  Weight: 91.2 kg

DRUGS (4)
  1. LARIAM [Suspect]
     Indication: MALARIA PROPHYLAXIS
     Dosage: 250 MG 1 PER WEEK ORAL
     Route: 048
     Dates: start: 20030915, end: 20040215
  2. CELEBREX [Concomitant]
  3. GLUCOSAMINE (GLUCOSAMINE) [Concomitant]
  4. CHONDROITIN (CHONDROITIN SULFATE) [Concomitant]

REACTIONS (22)
  - AGITATION [None]
  - ANGER [None]
  - ARTHRALGIA [None]
  - ASTHENIA [None]
  - BACK PAIN [None]
  - COMPLETED SUICIDE [None]
  - COUGH [None]
  - DEAFNESS [None]
  - DEPRESSION [None]
  - DIARRHOEA [None]
  - FATIGUE [None]
  - HEADACHE [None]
  - HYPOAESTHESIA [None]
  - MOOD SWINGS [None]
  - MYALGIA [None]
  - PANIC ATTACK [None]
  - PARAESTHESIA [None]
  - PSYCHOTIC DISORDER [None]
  - PYREXIA [None]
  - RASH [None]
  - SPOUSAL ABUSE [None]
  - TINNITUS [None]
